FAERS Safety Report 6030730-X (Version None)
Quarter: 2008Q4

REPORT INFORMATION
  Report Type: 
  Country: None (occurrence: None)
  Receive Date: 20081222
  Receipt Date: 20081008
  Transmission Date: 20090506
  Serious: No
  Sender: FDA-Public Use
  Company Number: US-WYE-H06314508

PATIENT
  Age: 35 Year
  Sex: Female
  Weight: 65.83 kg

DRUGS (2)
  1. PRISTIQ [Suspect]
     Indication: DEPRESSION
  2. RITALIN [Concomitant]

REACTIONS (1)
  - WEIGHT DECREASED [None]
